FAERS Safety Report 6989830-X (Version None)
Quarter: 2010Q3

REPORT INFORMATION
  Report Type: 
  Country: None (occurrence: None)
  Receive Date: 20100916
  Receipt Date: 20100302
  Transmission Date: 20110219
  Serious: Yes (Other)
  Sender: FDA-Public Use
  Company Number: ES-PFIZER INC-2010015864

PATIENT
  Sex: Female

DRUGS (5)
  1. LYRICA [Suspect]
     Indication: NEURALGIA
     Dosage: 75 MG, 2X/DAY
     Route: 048
     Dates: start: 20100115, end: 20100119
  2. PARACETAMOL [Concomitant]
     Indication: PAIN
     Dosage: 1 G, 3X/DAY
     Route: 042
     Dates: start: 20100115
  3. NOLOTIL /SPA/ [Concomitant]
     Indication: PAIN
     Dosage: 2 G, 3X/DAY
     Route: 042
     Dates: start: 20100115
  4. ADOLONTA [Concomitant]
     Dosage: UNK
     Route: 042
     Dates: start: 20100115
  5. PRIMPERAN TAB [Concomitant]
     Dosage: UNK
     Route: 042
     Dates: start: 20100115

REACTIONS (2)
  - ANXIETY [None]
  - TREMOR [None]
